FAERS Safety Report 9995499 (Version 1)
Quarter: 2014Q1

REPORT INFORMATION
  Report Type: Spontaneous
  Country: US (occurrence: None)
  Receive Date: 20140307
  Receipt Date: 20140307
  Transmission Date: 20141002
  Serious: No
  Sender: FDA-Public Use
  Company Number: None

PATIENT
  Age: 75 Year
  Sex: Male

DRUGS (4)
  1. EDARBYCLOR [Suspect]
     Indication: HYPERTENSION
     Dosage: BY MOUTH
     Dates: start: 20130607, end: 20130830
  2. HYDROCHLOROTHIAZIDE [Concomitant]
  3. BYSTOLIC [Concomitant]
  4. ATENOLOL [Concomitant]

REACTIONS (6)
  - Arthralgia [None]
  - Arthralgia [None]
  - Pain in extremity [None]
  - Muscle spasms [None]
  - Pain in extremity [None]
  - Gait disturbance [None]
